FAERS Safety Report 12665753 (Version 3)
Quarter: 2016Q3

REPORT INFORMATION
  Report Type: Spontaneous
  Country: SE (occurrence: SE)
  Receive Date: 20160818
  Receipt Date: 20160824
  Transmission Date: 20161109
  Serious: Yes (Other)
  Sender: FDA-Public Use
  Company Number: SE-JNJFOC-20160811548

PATIENT
  Age: 71 Year
  Sex: Male

DRUGS (2)
  1. SALAZOPYRIN [Concomitant]
     Active Substance: SULFASALAZINE
     Route: 065
     Dates: start: 20130101
  2. REMICADE [Suspect]
     Active Substance: INFLIXIMAB
     Indication: ARTHRITIS ENTEROPATHIC
     Route: 042
     Dates: start: 20160218, end: 20160621

REACTIONS (1)
  - Pneumonia [Not Recovered/Not Resolved]

NARRATIVE: CASE EVENT DATE: 20160607
